FAERS Safety Report 6863073-2 (Version None)
Quarter: 2010Q3

REPORT INFORMATION
  Report Type: 
  Country: None (occurrence: None)
  Receive Date: 20100721
  Receipt Date: 20100713
  Transmission Date: 20110219
  Serious: Yes (Hospitalization)
  Sender: FDA-Public Use
  Company Number: IT-SANOFI-AVENTIS-2010SA040602

PATIENT
  Age: 69 Year
  Sex: Male

DRUGS (2)
  1. LASIX [Suspect]
     Route: 048
     Dates: start: 20100101, end: 20100405
  2. ENAPREN [Suspect]
     Dosage: DOSE:2 UNIT(S)
     Route: 048
     Dates: start: 20100301, end: 20100405

REACTIONS (3)
  - HYPERKALAEMIA [None]
  - HYPOTENSION [None]
  - RENAL FAILURE CHRONIC [None]
